FAERS Safety Report 10193294 (Version 1)
Quarter: 2014Q2

REPORT INFORMATION
  Report Type: Spontaneous
  Country: US (occurrence: US)
  Receive Date: 20140524
  Receipt Date: 20140524
  Transmission Date: 20141212
  Serious: No
  Sender: FDA-Public Use
  Company Number: US-SA-2013SA111429

PATIENT
  Age: 81 Year
  Sex: Female
  Weight: 68.94 kg

DRUGS (11)
  1. SOLOSTAR [Suspect]
     Indication: TYPE 2 DIABETES MELLITUS
  2. LANTUS SOLOSTAR [Suspect]
     Indication: TYPE 2 DIABETES MELLITUS
     Dosage: DOSE:20 UNIT(S)
     Route: 058
  3. LEVOTHYROXINE [Concomitant]
  4. NITROFURANTOIN [Concomitant]
  5. ADVAIR [Concomitant]
  6. TRAMADOL HYDROCHLORIDE [Concomitant]
  7. FLUOCINONIDE [Concomitant]
  8. JANUMET [Concomitant]
  9. RAMIPRIL [Concomitant]
  10. DEXILANT [Concomitant]
  11. AZITHROMYCIN [Concomitant]

REACTIONS (3)
  - Oropharyngeal pain [Unknown]
  - Glycosylated haemoglobin increased [Unknown]
  - Blood glucose increased [Unknown]
